FAERS Safety Report 7775139-3 (Version None)
Quarter: 2011Q3

REPORT INFORMATION
  Report Type: 
  Country: None (occurrence: None)
  Receive Date: 20110921
  Receipt Date: 20110908
  Transmission Date: 20111222
  Serious: Yes (Life-Threatening, Hospitalization, Other)
  Sender: FDA-Public Use
  Company Number: THQ2011A05421

PATIENT
  Age: 64 Year
  Sex: Female

DRUGS (10)
  1. ATENOLOL [Concomitant]
  2. METFORMIN HCL [Concomitant]
  3. GLIMEPIRIDE [Concomitant]
  4. ASPIRIN [Concomitant]
  5. CHLORTHALIDONE [Concomitant]
  6. PLACEBO [Suspect]
     Indication: RENAL IMPAIRMENT
     Dosage: PER ORAL
     Route: 048
     Dates: start: 20101227
  7. PLACEBO [Suspect]
     Indication: TYPE 2 DIABETES MELLITUS
     Dosage: PER ORAL
     Route: 048
     Dates: start: 20101227
  8. PIOGLITAZONE HYDROCHLORIDE [Suspect]
     Indication: TYPE 2 DIABETES MELLITUS
     Dosage: 44 MG, PER ORAL
     Route: 048
     Dates: start: 20101227
  9. PIOGLITAZONE HYDROCHLORIDE [Suspect]
     Indication: RENAL IMPAIRMENT
     Dosage: 44 MG, PER ORAL
     Route: 048
     Dates: start: 20101227
  10. SIMVASTATIN [Concomitant]

REACTIONS (5)
  - BLOOD CREATINE INCREASED [None]
  - BLOOD UREA INCREASED [None]
  - BLOOD TRIGLYCERIDES INCREASED [None]
  - ISCHAEMIC STROKE [None]
  - BLOOD GLUCOSE INCREASED [None]
